FAERS Safety Report 5233646-1 (Version None)
Quarter: 2007Q1

REPORT INFORMATION
  Report Type: 
  Country: None (occurrence: None)
  Receive Date: 20070208
  Receipt Date: 20070129
  Transmission Date: 20070707
  Serious: Yes (Other)
  Sender: FDA-Public Use
  Company Number: US-JNJFOC-20070107337

PATIENT
  Sex: Female
  Weight: 102.51 kg

DRUGS (5)
  1. REMICADE [Suspect]
     Indication: CROHN'S DISEASE
     Route: 042
  2. TOPROL-XL [Concomitant]
  3. KCI [Concomitant]
  4. ASPIRIN [Concomitant]
  5. PREVACID [Concomitant]

REACTIONS (4)
  - CARDIAC DISORDER [None]
  - LUNG DISORDER [None]
  - SKIN LESION [None]
  - TUBERCULOSIS [None]
